FAERS Safety Report 12105255 (Version 3)
Quarter: 2016Q2

REPORT INFORMATION
  Report Type: Spontaneous
  Country: CH (occurrence: CH)
  Receive Date: 20160223
  Receipt Date: 20160419
  Transmission Date: 20160815
  Serious: Yes (Hospitalization, Other)
  Sender: FDA-Public Use
  Company Number: CH-GLAXOSMITHKLINE-CH2016GSK022820

PATIENT
  Age: 38 Year
  Sex: Female

DRUGS (6)
  1. CONCOR [Concomitant]
     Active Substance: BISOPROLOL FUMARATE
     Indication: OFFICE VISIT
     Dosage: 5 MG, UNK
     Route: 048
     Dates: start: 2014
  2. WELLBUTRIN XL [Suspect]
     Active Substance: BUPROPION HYDROCHLORIDE
     Indication: BIPOLAR DISORDER
     Dosage: 1200 MG, UNK
     Route: 048
     Dates: start: 201512
  3. DEPAKINE [Concomitant]
     Active Substance: VALPROATE SODIUM
     Indication: OFFICE VISIT
     Dosage: 500 MG, UNK
     Route: 048
     Dates: start: 2014
  4. QUETIAPINE. [Concomitant]
     Active Substance: QUETIAPINE
     Indication: OFFICE VISIT
     Dosage: UNK
     Route: 048
     Dates: start: 2014
  5. WELLBUTRIN XL [Suspect]
     Active Substance: BUPROPION HYDROCHLORIDE
     Indication: BORDERLINE PERSONALITY DISORDER
  6. TRANSIPEG FORTE [Concomitant]
     Indication: CONSTIPATION
     Route: 048

REACTIONS (3)
  - Psychotic disorder [Recovered/Resolved]
  - Accidental overdose [Recovered/Resolved]
  - Schizophrenia [Recovered/Resolved]

NARRATIVE: CASE EVENT DATE: 201512
